FAERS Safety Report 20154742 (Version 1)
Quarter: 2021Q4

REPORT INFORMATION
  Report Type: Other
  Country: CA (occurrence: CA)
  Receive Date: 20211207
  Receipt Date: 20211207
  Transmission Date: 20220303
  Serious: Yes (Hospitalization, Other)
  Sender: FDA-Public Use
  Company Number: CA-APOTEX-2021AP046081

PATIENT
  Age: 94 Year
  Sex: Female

DRUGS (1)
  1. RAMIPRIL [Suspect]
     Active Substance: RAMIPRIL
     Indication: Essential hypertension
     Dosage: UNK
     Route: 048

REACTIONS (3)
  - Heat stroke [Unknown]
  - Hypovolaemia [Unknown]
  - Acute kidney injury [Unknown]
